FAERS Safety Report 5036699-9 (Version None)
Quarter: 2006Q2

REPORT INFORMATION
  Report Type: 
  Country: None (occurrence: None)
  Receive Date: 20060601
  Receipt Date: 20060206
  Transmission Date: 20061013
  Serious: No
  Sender: FDA-Public Use
  Company Number: 2006PV008223

PATIENT
  Age: 35 Year
  Sex: Female
  Weight: 81.6475 kg

DRUGS (5)
  1. BYETTA [Suspect]
     Indication: GLUCOSE TOLERANCE IMPAIRED
     Dosage: 5 MCG;BID;SC
     Route: 058
     Dates: start: 20060124
  2. PROZAC [Concomitant]
  3. CLONOPEN [Concomitant]
  4. NEURONTIN [Concomitant]
  5. YASMIN [Concomitant]

REACTIONS (4)
  - ANXIETY [None]
  - BLOOD GLUCOSE DECREASED [None]
  - NAUSEA [None]
  - PANIC ATTACK [None]
